FAERS Safety Report 12408300 (Version 3)
Quarter: 2016Q3

REPORT INFORMATION
  Report Type: Spontaneous
  Country: US (occurrence: US)
  Receive Date: 20160526
  Receipt Date: 20160729
  Transmission Date: 20161109
  Serious: Yes (Hospitalization)
  Sender: FDA-Public Use
  Company Number: US-PFIZER INC-2016267035

PATIENT
  Age: 5 Year
  Sex: Male
  Weight: 21 kg

DRUGS (5)
  1. CELONTIN [Suspect]
     Active Substance: METHSUXIMIDE
     Dosage: 900 MG, DAILY (300MG CAP 1 AM, 2 PM)
     Route: 048
     Dates: start: 20160119, end: 20160209
  2. DIVALPROEX [Concomitant]
     Active Substance: DIVALPROEX SODIUM
     Indication: EPILEPSY
     Dosage: 500 MG, 2X/DAY (125 MG 4 CAPSULES IN MORNING AND 4 CAPSULES IN THE AFTERNOON)
     Route: 048
     Dates: start: 2015, end: 20160314
  3. CELONTIN [Suspect]
     Active Substance: METHSUXIMIDE
     Dosage: 1 DF, 3X/DAY
     Route: 048
     Dates: end: 20160208
  4. CELONTIN [Suspect]
     Active Substance: METHSUXIMIDE
     Indication: EPILEPSY
     Dosage: 1 DF, 1X/DAY
     Dates: start: 20160120
  5. CELONTIN [Suspect]
     Active Substance: METHSUXIMIDE
     Dosage: 1 DF, 2X/DAY
     Route: 048

REACTIONS (5)
  - Feeling abnormal [Recovered/Resolved]
  - Somnolence [Recovered/Resolved]
  - Tremor [Recovered/Resolved]
  - Drug reaction with eosinophilia and systemic symptoms [Recovered/Resolved]
  - Decreased appetite [Recovered/Resolved]

NARRATIVE: CASE EVENT DATE: 20160126
